FAERS Safety Report 10067175 (Version 1)
Quarter: 2014Q2

REPORT INFORMATION
  Report Type: Spontaneous
  Country: US (occurrence: None)
  Receive Date: 20140408
  Receipt Date: 20140408
  Transmission Date: 20141212
  Serious: No
  Sender: FDA-Public Use
  Company Number: None

PATIENT
  Age: 72 Year
  Sex: Male
  Weight: 65.32 kg

DRUGS (2)
  1. XARELTO [Suspect]
     Indication: PULMONARY VASCULAR DISORDER
     Dosage: 1 PILL ONCE DAILY TAKEN BY MOUTH
     Route: 048
     Dates: start: 20140104, end: 20140322
  2. XARELTO [Suspect]
     Indication: ANTICOAGULANT THERAPY
     Dosage: 1 PILL ONCE DAILY TAKEN BY MOUTH
     Route: 048
     Dates: start: 20140104, end: 20140322

REACTIONS (5)
  - Musculoskeletal pain [None]
  - Haemorrhage [None]
  - Swelling [None]
  - Skin warm [None]
  - Periarthritis [None]
